FAERS Safety Report 9015715 (Version 1)
Quarter: 2013Q1

REPORT INFORMATION
  Report Type: Report from Study
  Country: DE (occurrence: DE)
  Receive Date: 20130116
  Receipt Date: 20130116
  Transmission Date: 20140127
  Serious: Yes (Other)
  Sender: FDA-Public Use
  Company Number: DE-BAYER-2013-004085

PATIENT
  Age: 41 Year
  Sex: 0

DRUGS (1)
  1. BETAFERON [Suspect]

REACTIONS (1)
  - Necrosis [None]
